FAERS Safety Report 7653651-5 (Version None)
Quarter: 2011Q3

REPORT INFORMATION
  Report Type: 
  Country: None (occurrence: None)
  Receive Date: 20110803
  Receipt Date: 20110727
  Transmission Date: 20111222
  Serious: Yes (Hospitalization)
  Sender: FDA-Public Use
  Company Number: DE-ROCHE-793154

PATIENT
  Sex: Female
  Weight: 81 kg

DRUGS (2)
  1. TENOFOVIR DISOPROXIL FUMARATE [Suspect]
     Dosage: LAST DOSE PRIOR TO SAE: 08 AUGUST 2011
     Route: 048
     Dates: start: 20100222
  2. PEGINTERFERON ALFA-2A [Suspect]
     Route: 058
     Dates: start: 20100222

REACTIONS (1)
  - HEPATIC NEOPLASM MALIGNANT [None]
